APPROVED DRUG PRODUCT: LEVOTHYROXINE SODIUM
Active Ingredient: LEVOTHYROXINE SODIUM
Strength: 200MCG/5ML (40MCG/ML)
Dosage Form/Route: SOLUTION;INTRAVENOUS
Application: N210632 | Product #002
Applicant: FRESENIUS KABI USA LLC
Approved: Apr 11, 2019 | RLD: Yes | RS: Yes | Type: RX

PATENTS:
Patent 9782376 | Expires: Dec 1, 2036
Patent 10398669 | Expires: Dec 1, 2036
Patent 11135190 | Expires: Dec 1, 2036